FAERS Safety Report 7576637-8 (Version None)
Quarter: 2011Q2

REPORT INFORMATION
  Report Type: 
  Country: None (occurrence: None)
  Receive Date: 20110628
  Receipt Date: 20110617
  Transmission Date: 20111010
  Serious: Yes (Disabling)
  Sender: FDA-Public Use
  Company Number: US-ELI_LILLY_AND_COMPANY-US201105003730

PATIENT
  Sex: Female
  Weight: 81.633 kg

DRUGS (8)
  1. BYETTA [Suspect]
     Dosage: 10 UG, BID
     Route: 058
  2. AMARYL [Concomitant]
     Indication: TYPE 2 DIABETES MELLITUS
     Route: 048
  3. BYETTA [Suspect]
     Dosage: 10 UG, BID
     Route: 058
  4. GLUMETZA [Concomitant]
     Indication: TYPE 2 DIABETES MELLITUS
     Route: 048
  5. METFORMIN HCL [Concomitant]
     Indication: TYPE 2 DIABETES MELLITUS
     Dosage: 1000 MG, BID
     Route: 048
  6. METFORMIN HCL [Concomitant]
     Indication: TYPE 2 DIABETES MELLITUS
     Route: 048
  7. BYETTA [Suspect]
     Indication: TYPE 2 DIABETES MELLITUS
     Dosage: 5 UG, BID
     Route: 058
  8. BYETTA [Suspect]
     Dosage: 10 UG, QD
     Route: 058

REACTIONS (6)
  - BLOOD GLUCOSE INCREASED [None]
  - MUSCLE SPASMS [None]
  - MYALGIA [None]
  - DIARRHOEA [None]
  - ACCIDENTAL OVERDOSE [None]
  - DRUG EFFECT DECREASED [None]
